FAERS Safety Report 7047972-7 (Version None)
Quarter: 2010Q4

REPORT INFORMATION
  Report Type: 
  Country: None (occurrence: None)
  Receive Date: 20101015
  Receipt Date: 20101008
  Transmission Date: 20110411
  Serious: Yes (Hospitalization)
  Sender: FDA-Public Use
  Company Number: A0793319A

PATIENT
  Age: 45 Year
  Sex: Female

DRUGS (1)
  1. AVANDIA [Suspect]
     Dosage: 2MG TWICE PER DAY
     Route: 065
     Dates: start: 19990101, end: 20000801

REACTIONS (1)
  - CEREBROVASCULAR ACCIDENT [None]
